FAERS Safety Report 4751610-3 (Version None)
Quarter: 2005Q3

REPORT INFORMATION
  Report Type: 
  Country: None (occurrence: None)
  Receive Date: 20050824
  Receipt Date: 20050818
  Transmission Date: 20060218
  Serious: Yes (Life-Threatening, Hospitalization, Disabling)
  Sender: FDA-Public Use
  Company Number: US-JNJFOC-20050800591

PATIENT
  Age: 55 Year
  Sex: Male

DRUGS (1)
  1. LEVAQUIN [Suspect]
     Indication: INFECTION PROPHYLAXIS

REACTIONS (4)
  - COMA [None]
  - ESCHERICHIA SEPSIS [None]
  - MYOCARDIAL INFARCTION [None]
  - PATHOGEN RESISTANCE [None]
